FAERS Safety Report 8382161-5 (Version None)
Quarter: 2012Q2

REPORT INFORMATION
  Report Type: 
  Country: None (occurrence: None)
  Receive Date: 20120501
  Receipt Date: 20120424
  Transmission Date: 20120825
  Serious: Yes (Other)
  Sender: FDA-Public Use
  Company Number: 2011029347

PATIENT
  Age: 59 Year
  Sex: Male
  Weight: 106.5953 kg

DRUGS (26)
  1. HIZENTRA [Suspect]
  2. TRICOR [Concomitant]
  3. WELLBUTRIN [Concomitant]
  4. LEVOTHYROXINE SODIUM [Concomitant]
  5. HIZENTRA [Suspect]
     Indication: HYPOGAMMAGLOBULINAEMIA
     Dosage: 23 G 1X/WEEK, 1 GM 5 ML VIAL (115 ML) IN 1-2 HOURS VIA 5 SITES, SUBCUTANEOUS) (2 GM, 10 ML VIAL  SUB
     Route: 058
     Dates: start: 20120423
  6. HIZENTRA [Suspect]
     Indication: HYPOGAMMAGLOBULINAEMIA
     Dosage: 23 G 1X/WEEK, 1 GM 5 ML VIAL (115 ML) IN 1-2 HOURS VIA 5 SITES, SUBCUTANEOUS) (2 GM, 10 ML VIAL  SUB
     Route: 058
     Dates: start: 20110317
  7. TRIMETHOBENZAMIDE (TRIMETHOBENZAMIDE) [Concomitant]
  8. VYTORIN [Concomitant]
  9. ZEGERID (OMEPRAZOLE) [Concomitant]
  10. OXYGEN (OXYGEN) [Concomitant]
  11. CYCLOBENZAPRINE [Concomitant]
  12. SEROQUEL [Concomitant]
  13. ACETAMINOPHEN [Concomitant]
  14. HIZENTRA [Suspect]
  15. HIZENTRA [Suspect]
  16. HIZENTRA [Suspect]
  17. HIZENTRA [Suspect]
  18. PROPRANOLOL [Concomitant]
  19. HIZENTRA [Suspect]
  20. TESTOSTERONE [Concomitant]
  21. DIPHENHYDRAMINE HCL [Concomitant]
  22. LOTREL [Concomitant]
  23. ASPIRIN [Concomitant]
  24. HIZENTRA [Suspect]
  25. LIDOCAINE/PRILOCAINE (LIDOCAINE) [Concomitant]
  26. MECLIZINE [Concomitant]

REACTIONS (9)
  - INFUSION RELATED REACTION [None]
  - INFUSION SITE ERYTHEMA [None]
  - NAUSEA [None]
  - INNER EAR DISORDER [None]
  - HEADACHE [None]
  - RASH MACULAR [None]
  - HYPOTENSION [None]
  - STRESS [None]
  - MIGRAINE [None]
